FAERS Safety Report 4710862-6 (Version None)
Quarter: 2005Q3

REPORT INFORMATION
  Report Type: 
  Country: None (occurrence: None)
  Receive Date: 20050711
  Receipt Date: 20041203
  Transmission Date: 20060218
  Serious: Yes (Other)
  Sender: FDA-Public Use
  Company Number: GB-GLAXOSMITHKLINE-B0361031A

PATIENT
  Sex: Female

DRUGS (6)
  1. PAROXETINE HYDROCHLORIDE [Suspect]
     Route: 065
     Dates: start: 19960101, end: 20031001
  2. AMITRIPTYLINE HCL [Concomitant]
     Route: 065
  3. DICLOFENAC SODIUM [Concomitant]
     Route: 065
  4. DIHYDROCODEINE [Concomitant]
     Route: 065
  5. ZOPICLONE [Concomitant]
     Route: 065
  6. FROVA [Concomitant]
     Route: 065

REACTIONS (7)
  - DEPRESSION [None]
  - DRUG WITHDRAWAL SYNDROME [None]
  - FEAR [None]
  - INSOMNIA [None]
  - SOCIAL AVOIDANT BEHAVIOUR [None]
  - SUICIDAL IDEATION [None]
  - TEARFULNESS [None]
